FAERS Safety Report 7081889-7 (Version None)
Quarter: 2010Q4

REPORT INFORMATION
  Report Type: 
  Country: None (occurrence: None)
  Receive Date: 20101103
  Receipt Date: 20101020
  Transmission Date: 20110411
  Serious: Yes (Death)
  Sender: FDA-Public Use
  Company Number: US-AMGEN-QUU442010

PATIENT

DRUGS (5)
  1. NPLATE [Suspect]
     Indication: IDIOPATHIC THROMBOCYTOPENIC PURPURA
     Dosage: UNK UNK, UNK
     Dates: start: 20100914, end: 20100921
  2. NPLATE [Suspect]
     Dates: start: 20100914, end: 20100921
  3. ATENOLOL [Concomitant]
  4. ZOCOR [Concomitant]
  5. VALTREX [Concomitant]

REACTIONS (1)
  - DEATH [None]
